FAERS Safety Report 4550981-0 (Version None)
Quarter: 2004Q4

REPORT INFORMATION
  Report Type: 
  Country: None (occurrence: None)
  Receive Date: 20041217
  Receipt Date: 20040823
  Transmission Date: 20050328
  Serious: No
  Sender: FDA-Public Use
  Company Number: 2004-BP-07159BP

PATIENT
  Age: 83 Year
  Sex: Male

DRUGS (9)
  1. SPIRIVA [Suspect]
     Indication: CHRONIC OBSTRUCTIVE AIRWAYS DISEASE
     Dosage: 18 MCG *18 MCG, QD) IH
     Route: 055
     Dates: start: 20040801
  2. VERAPAMIL [Concomitant]
  3. AVANDAMET [Concomitant]
  4. LIPITOR [Concomitant]
  5. CELEBREX [Concomitant]
  6. ASACOL [Concomitant]
  7. PLAVIX [Concomitant]
  8. FUROSEMIDE [Concomitant]
  9. AMARYL [Concomitant]

REACTIONS (3)
  - COUGH [None]
  - DRY MOUTH [None]
  - PRODUCTIVE COUGH [None]
